FAERS Safety Report 8992354 (Version 1)
Quarter: 2012Q4

REPORT INFORMATION
  Report Type: 
  Country: US (occurrence: US)
  Receive Date: 20121231
  Receipt Date: 20121231
  Transmission Date: 20130627
  Serious: Yes (Other)
  Sender: FDA-Public Use
  Company Number: US-CELGENEUS-163-21880-12020317

PATIENT
  Age: 71 None
  Sex: Male
  Weight: 92.62 kg

DRUGS (4)
  1. REVLIMID [Suspect]
     Indication: MULTIPLE MYELOMA
     Dosage: 15 Milligram
     Route: 048
     Dates: start: 20100911
  2. REVLIMID [Suspect]
     Dosage: 10-15mg
     Route: 048
     Dates: start: 20101126
  3. REVLIMID [Suspect]
     Dosage: 10 Milligram
     Route: 048
     Dates: start: 201105
  4. REVLIMID [Suspect]
     Dosage: 5 Milligram
     Route: 048
     Dates: start: 201209

REACTIONS (3)
  - Prostate cancer [Unknown]
  - Diarrhoea [Recovered/Resolved]
  - Red blood cell count decreased [Recovered/Resolved]
